FAERS Safety Report 10134365 (Version 1)
Quarter: 2014Q2

REPORT INFORMATION
  Report Type: Spontaneous
  Country: CH (occurrence: CH)
  Receive Date: 20140428
  Receipt Date: 20140428
  Transmission Date: 20141212
  Serious: Yes (Other)
  Sender: FDA-Public Use
  Company Number: CH-BAXTER-2014BAX019670

PATIENT
  Age: 18 Year
  Sex: Male

DRUGS (5)
  1. IFOSFAMIDE 40 MG/ML SOLUTION FOR INFUSION [Suspect]
     Indication: ALVEOLAR RHABDOMYOSARCOMA
     Dosage: DAY 1 THROUGH DAY 3
     Route: 065
     Dates: start: 201301, end: 201308
  2. VINCRISTINE SULFATE [Suspect]
     Indication: ALVEOLAR RHABDOMYOSARCOMA
     Route: 065
     Dates: start: 201301, end: 201308
  3. ACTINOMYCIN D [Suspect]
     Indication: ALVEOLAR RHABDOMYOSARCOMA
     Route: 065
     Dates: start: 201301, end: 2013
  4. ETOPOSIDE [Suspect]
     Indication: ALVEOLAR RHABDOMYOSARCOMA
     Route: 065
     Dates: start: 2013, end: 2013
  5. CARBOPLATIN [Suspect]
     Indication: ALVEOLAR RHABDOMYOSARCOMA
     Route: 065
     Dates: start: 2013, end: 2013

REACTIONS (3)
  - Disease progression [Unknown]
  - Leukopenia [Unknown]
  - Alanine aminotransferase increased [Unknown]
